FAERS Safety Report 5905303-7 (Version None)
Quarter: 2008Q4

REPORT INFORMATION
  Report Type: 
  Country: None (occurrence: None)
  Receive Date: 20081001
  Receipt Date: 20080925
  Transmission Date: 20090506
  Serious: Yes (Hospitalization)
  Sender: FDA-Public Use
  Company Number: US-B.I. PHARMACEUTICALS,INC./RIDGEFIELD-2007-BP-24346BP

PATIENT
  Sex: Female

DRUGS (5)
  1. SPIRIVA [Suspect]
     Indication: LUNG DISORDER
     Dosage: 18MCG
     Route: 055
     Dates: start: 20060101
  2. NEXIUM [Suspect]
     Indication: GASTROOESOPHAGEAL REFLUX DISEASE
     Dates: start: 20060101
  3. COMBIVENT [Concomitant]
  4. PULMICORT-100 [Concomitant]
  5. XOPENEX NEB [Concomitant]

REACTIONS (6)
  - CATARACT [None]
  - CONSTIPATION [None]
  - EYE DISORDER [None]
  - NAUSEA [None]
  - PALPITATIONS [None]
  - VISION BLURRED [None]
